FAERS Safety Report 4322350-X (Version None)
Quarter: 2004Q1

REPORT INFORMATION
  Report Type: 
  Country: None (occurrence: None)
  Receive Date: 20040319
  Receipt Date: 20040303
  Transmission Date: 20041129
  Serious: Yes (Hospitalization)
  Sender: FDA-Public Use
  Company Number: ZANA001145

PATIENT
  Age: 34 Year
  Sex: Male

DRUGS (4)
  1. TIZANIDINE HCL [Suspect]
     Indication: BACK PAIN
     Dosage: 1 MG DAILY ORAL
     Route: 048
  2. LAMISIL (TERBINAFINE HYDROCHLORIDE) [Suspect]
     Indication: NAIL TINEA
     Dosage: 125 GM DAILY ORAL
     Route: 048
     Dates: start: 20010816, end: 20011029
  3. LORNOXICAM (LORNOXICAM) [Suspect]
     Indication: BACK PAIN
     Dosage: 4 MG DAILY ORAL
     Route: 048
  4. MUCOSTA (REBAMIPIDE) [Concomitant]

REACTIONS (4)
  - ASPARTATE AMINOTRANSFERASE INCREASED [None]
  - BLOOD CREATINE PHOSPHOKINASE INCREASED [None]
  - BLOOD LACTATE DEHYDROGENASE INCREASED [None]
  - MALAISE [None]
